FAERS Safety Report 7156518-4 (Version None)
Quarter: 2010Q4

REPORT INFORMATION
  Report Type: 
  Country: None (occurrence: None)
  Receive Date: 20101214
  Receipt Date: 20091119
  Transmission Date: 20110411
  Serious: No
  Sender: FDA-Public Use
  Company Number: US-ASTRAZENECA-2009SE27967

PATIENT
  Age: 56 Year
  Sex: Female
  Weight: 49.7 kg

DRUGS (5)
  1. CRESTOR [Suspect]
     Route: 048
     Dates: start: 20090901
  2. CRESTOR [Suspect]
     Route: 048
     Dates: start: 20091029
  3. THYROID TAB [Concomitant]
  4. PROGESTERONE [Concomitant]
  5. SUPPLEMENTS [Concomitant]

REACTIONS (2)
  - PARAESTHESIA ORAL [None]
  - SALIVARY HYPERSECRETION [None]
